FAERS Safety Report 6033767-X (Version None)
Quarter: 2009Q1

REPORT INFORMATION
  Report Type: 
  Country: None (occurrence: None)
  Receive Date: 20090112
  Receipt Date: 20081205
  Transmission Date: 20090719
  Serious: Yes (Hospitalization)
  Sender: FDA-Public Use
  Company Number: GB-BAXTER-2008BH011948

PATIENT
  Age: 72 Year
  Sex: Female

DRUGS (6)
  1. CYCLOPHOSPHAMIDE [Suspect]
     Indication: WEGENER'S GRANULOMATOSIS
     Route: 042
  2. CYCLOPHOSPHAMIDE [Suspect]
     Indication: GLOMERULONEPHRITIS
     Route: 042
  3. METHYLPREDNISOLONE 16MG TAB [Suspect]
     Indication: WEGENER'S GRANULOMATOSIS
     Dosage: DOSE UNIT:UNKNOWN
     Route: 048
  4. METHYLPREDNISOLONE 16MG TAB [Suspect]
     Indication: GLOMERULONEPHRITIS
     Dosage: DOSE UNIT:UNKNOWN
     Route: 048
  5. PREDNISOLONE [Suspect]
     Indication: WEGENER'S GRANULOMATOSIS
     Route: 048
  6. PREDNISOLONE [Suspect]
     Indication: GLOMERULONEPHRITIS
     Route: 048

REACTIONS (5)
  - AMNESIA [None]
  - CENTRAL NERVOUS SYSTEM LYMPHOMA [None]
  - DIFFUSE LARGE B-CELL LYMPHOMA [None]
  - DYSPHASIA [None]
  - EPSTEIN-BARR VIRUS ANTIGEN POSITIVE [None]
